FAERS Safety Report 4843498-7 (Version None)
Quarter: 2005Q4

REPORT INFORMATION
  Report Type: 
  Country: None (occurrence: None)
  Receive Date: 20051202
  Receipt Date: 20051122
  Transmission Date: 20060501
  Serious: Yes (Other)
  Sender: FDA-Public Use
  Company Number: PHFR2005GB03820

PATIENT
  Age: 37 Year
  Sex: Male

DRUGS (2)
  1. TEGRETOL [Suspect]
     Indication: EPILEPSY
     Route: 065
  2. PRO-PLUS [Suspect]
     Route: 065

REACTIONS (3)
  - AGGRESSION [None]
  - ANGER [None]
  - DRUG INTERACTION [None]
